FAERS Safety Report 9857459 (Version 3)
Quarter: 2014Q1

REPORT INFORMATION
  Report Type: Report from Study
  Country: FR (occurrence: FR)
  Receive Date: 20140131
  Receipt Date: 20140203
  Transmission Date: 20141002
  Serious: Yes (Hospitalization, Other)
  Sender: FDA-Public Use
  Company Number: FR-ROCHE-1164871

PATIENT
  Age: 67 Year
  Sex: Female

DRUGS (7)
  1. RITUXIMAB [Suspect]
     Indication: RHEUMATOID ARTHRITIS
     Dosage: (D1)
     Route: 065
     Dates: start: 20090127
  2. RITUXIMAB [Suspect]
     Dosage: D15
     Route: 065
     Dates: start: 20090212
  3. RITUXIMAB [Suspect]
     Dosage: D1
     Route: 065
     Dates: start: 20100105
  4. RITUXIMAB [Suspect]
     Dosage: D15
     Route: 065
     Dates: start: 20100119
  5. METHOTREXATE [Concomitant]
     Route: 065
  6. METHOTREXATE [Concomitant]
     Route: 065
  7. CORTANCYL [Concomitant]
     Route: 065

REACTIONS (8)
  - Peritonitis [Unknown]
  - Ileal perforation [Unknown]
  - Basal cell carcinoma [Recovered/Resolved]
  - Epstein-Barr virus associated lymphoma [Recovered/Resolved]
  - Splenic cyst [Recovered/Resolved]
  - Cyst drainage [Recovered/Resolved]
  - Asthenia [Recovered/Resolved]
  - Nasopharyngitis [Recovered/Resolved]
